FAERS Safety Report 6788476-6 (Version None)
Quarter: 2010Q2

REPORT INFORMATION
  Report Type: 
  Country: None (occurrence: None)
  Receive Date: 20100623
  Receipt Date: 20080428
  Transmission Date: 20101027
  Serious: No
  Sender: FDA-Public Use
  Company Number: US-PFIZER INC-2008028207

PATIENT
  Sex: Male

DRUGS (4)
  1. XALATAN [Suspect]
     Indication: GLAUCOMA
  2. METOPROLOL TARTRATE [Concomitant]
  3. VICODIN [Concomitant]
  4. RISPERDAL [Concomitant]

REACTIONS (2)
  - EYE DISORDER [None]
  - HYPERSENSITIVITY [None]
